FAERS Safety Report 4928040-4 (Version None)
Quarter: 2006Q1

REPORT INFORMATION
  Report Type: 
  Country: None (occurrence: None)
  Receive Date: 20060127
  Receipt Date: 20051213
  Transmission Date: 20060701
  Serious: Yes (Other)
  Sender: FDA-Public Use
  Company Number: 2005168877

PATIENT
  Age: 81 Year
  Sex: Male
  Weight: 117.028 kg

DRUGS (9)
  1. LYRICA [Suspect]
     Indication: NEUROPATHY PERIPHERAL
     Dosage: 150 MG (50 MG, 3 IN 1 D)
     Dates: start: 20051213
  2. COUMADIN [Concomitant]
  3. FUROSEMIDE [Concomitant]
  4. POTASSIUM (POTASSIUM) [Concomitant]
  5. GLIPIZIDE (GLIPZIDE) [Concomitant]
  6. METFORMIN HCL [Concomitant]
  7. DIGOXIN [Concomitant]
  8. TRAMADOL HCL [Concomitant]
  9. LISINOPRIL [Concomitant]

REACTIONS (1)
  - SOMNOLENCE [None]
